FAERS Safety Report 7978617-7 (Version None)
Quarter: 2011Q4

REPORT INFORMATION
  Report Type: 
  Country: None (occurrence: None)
  Receive Date: 20111206
  Receipt Date: 20111129
  Transmission Date: 20120403
  Serious: Yes (Hospitalization)
  Sender: FDA-Public Use
  Company Number: ACO_27788_2011

PATIENT
  Age: 55 Year
  Sex: Female

DRUGS (12)
  1. RISEDRONATE SODIUM [Concomitant]
  2. IBUPROFEN [Concomitant]
  3. VITAMIN K /00032401/ (PHYTOMENADIONE) [Concomitant]
  4. CALCIUM /00060701/ (CALCIUM GLUCONATE) [Concomitant]
  5. MODAFINIL [Concomitant]
  6. FAMPRIDINE-SR (FAMPRIDINE) TABLET [Suspect]
     Indication: MULTIPLE SCLEROSIS
     Dosage: 10 MG, QD, ORAL
     Route: 048
     Dates: start: 20040517
  7. ACETAMINOPHEN [Concomitant]
  8. FLUOXETINE HYDROCHLORIDE [Concomitant]
  9. ERGOCALCIFEROL [Concomitant]
  10. ZOPICLONE (ZOPICLONE) [Concomitant]
  11. VITAMIN B COMPLEX (VITAMIN B COMPLEX) [Concomitant]
  12. OMEGA-3-ACID ETHYL ESTERS (LOVAZA) [Concomitant]

REACTIONS (1)
  - RADIUS FRACTURE [None]
